FAERS Safety Report 17776028 (Version 2)
Quarter: 2020Q2

REPORT INFORMATION
  Report Type: Spontaneous
  Country: US (occurrence: US)
  Receive Date: 20200513
  Receipt Date: 20200605
  Transmission Date: 20200714
  Serious: No
  Sender: FDA-Public Use
  Company Number: US-PFIZER INC-2020189727

PATIENT
  Age: 54 Year
  Sex: Female

DRUGS (3)
  1. METHOTREXATE. [Concomitant]
     Active Substance: METHOTREXATE
     Dosage: 1.0CC, WEEKLY
     Route: 058
  2. XELJANZ XR [Suspect]
     Active Substance: TOFACITINIB CITRATE
     Indication: PSORIASIS
  3. XELJANZ XR [Suspect]
     Active Substance: TOFACITINIB CITRATE
     Indication: ARTHRALGIA
     Dosage: 11 MG, DAILY
     Route: 048
     Dates: start: 20200129, end: 202004

REACTIONS (6)
  - Joint stiffness [Unknown]
  - Drug ineffective [Unknown]
  - Groin pain [Unknown]
  - Night sweats [Unknown]
  - Fear of injection [Unknown]
  - Frustration tolerance decreased [Unknown]
